FAERS Safety Report 5077822-X (Version None)
Quarter: 2006Q3

REPORT INFORMATION
  Report Type: 
  Country: None (occurrence: None)
  Receive Date: 20060807
  Receipt Date: 20060726
  Transmission Date: 20061208
  Serious: Yes (Hospitalization)
  Sender: FDA-Public Use
  Company Number: 2006VX000371

PATIENT
  Age: 43 Year
  Sex: Female
  Weight: 58.9676 kg

DRUGS (7)
  1. INTERFERON ALFACON-1 [Suspect]
     Indication: HEPATITIS C
     Dosage: SEE IMAGE
     Route: 058
     Dates: start: 20051201, end: 20060608
  2. INTERFERON ALFACON-1 [Suspect]
     Indication: HEPATITIS C
     Dosage: SEE IMAGE
     Route: 058
     Dates: start: 20060710, end: 20060714
  3. INTERFERON ALFACON-1 [Suspect]
     Indication: HEPATITIS C
     Dosage: SEE IMAGE
     Route: 058
     Dates: start: 20051201
  4. RIBAVIRIN [Concomitant]
  5. PROZAC [Concomitant]
  6. NEUPOGEN [Concomitant]
  7. RISPERIDONE [Concomitant]

REACTIONS (20)
  - ASTHENIA [None]
  - BEREAVEMENT REACTION [None]
  - BLOOD PRESSURE INCREASED [None]
  - BURNING SENSATION [None]
  - CONDITION AGGRAVATED [None]
  - DEHYDRATION [None]
  - DEPRESSION [None]
  - DIZZINESS [None]
  - DYSPNOEA EXERTIONAL [None]
  - EPISTAXIS [None]
  - HEADACHE [None]
  - INFLUENZA LIKE ILLNESS [None]
  - LIVER DISORDER [None]
  - MIGRAINE [None]
  - NAUSEA [None]
  - ORAL INTAKE REDUCED [None]
  - RENAL DISORDER [None]
  - VOMITING [None]
  - WEIGHT DECREASED [None]
  - WHITE BLOOD CELL COUNT DECREASED [None]
